FAERS Safety Report 4566938-X (Version None)
Quarter: 2005Q1

REPORT INFORMATION
  Report Type: 
  Country: None (occurrence: None)
  Receive Date: 20050201
  Receipt Date: 20030423
  Transmission Date: 20050727
  Serious: Yes (Other)
  Sender: FDA-Public Use
  Company Number: US-BRISTOL-MYERS SQUIBB COMPANY-12254249

PATIENT
  Age: 34 Year
  Sex: Female

DRUGS (10)
  1. STADOL [Suspect]
     Indication: MIGRAINE
     Route: 045
     Dates: start: 19950110, end: 20010301
  2. PROPOXYPHENE NAPSYLATE [Concomitant]
  3. AMITRIPTYLINE HCL [Concomitant]
  4. ULTRAM [Concomitant]
  5. HYDROCODONE + ACETAMINOPHEN [Concomitant]
  6. HYDROXYZINE PAMOATE [Concomitant]
  7. CARISOPRODOL [Concomitant]
  8. DEPAKOTE [Concomitant]
  9. PHENERGAN [Concomitant]
  10. MYLANTA [Concomitant]

REACTIONS (1)
  - DEPENDENCE [None]
